FAERS Safety Report 8267438-6 (Version None)
Quarter: 2012Q2

REPORT INFORMATION
  Report Type: 
  Country: None (occurrence: None)
  Receive Date: 20120409
  Receipt Date: 20120403
  Transmission Date: 20120825
  Serious: Yes (Death)
  Sender: FDA-Public Use
  Company Number: GB-JNJFOC-20120403167

PATIENT

DRUGS (32)
  1. VINCRISTINE [Suspect]
     Indication: HODGKIN'S DISEASE
     Route: 042
  2. CHLORAMBUCIL [Suspect]
     Indication: HODGKIN'S DISEASE
     Route: 048
  3. DOXORUBICIN HCL [Suspect]
     Indication: HODGKIN'S DISEASE
     Route: 042
  4. BLEOMYCIN SULFATE [Suspect]
     Indication: HODGKIN'S DISEASE
     Route: 042
  5. VINCRISTINE [Suspect]
     Route: 042
  6. DACARBAZINE [Suspect]
     Indication: HODGKIN'S DISEASE
     Route: 042
  7. VINBLASTINE SULFATE [Suspect]
     Route: 042
  8. PROCARBAZINE HYDROCHLORIDE [Suspect]
     Indication: HODGKIN'S DISEASE
     Route: 048
  9. BLEOMYCIN SULFATE [Suspect]
     Route: 042
  10. VINBLASTINE SULFATE [Suspect]
     Route: 042
  11. DOXORUBICIN HCL [Suspect]
     Route: 042
  12. DACARBAZINE [Suspect]
     Route: 042
  13. DACARBAZINE [Suspect]
     Route: 042
  14. PROCARBAZINE HYDROCHLORIDE [Suspect]
     Route: 048
  15. BLEOMYCIN SULFATE [Suspect]
     Route: 042
  16. VINCRISTINE [Suspect]
     Route: 042
  17. CHLORAMBUCIL [Suspect]
     Route: 048
  18. PREDNISOLONE [Suspect]
     Route: 048
  19. DACARBAZINE [Suspect]
     Route: 042
  20. CHLORAMBUCIL [Suspect]
     Route: 048
  21. VINBLASTINE SULFATE [Suspect]
     Indication: HODGKIN'S DISEASE
     Route: 042
  22. PROCARBAZINE HYDROCHLORIDE [Suspect]
     Route: 048
  23. PREDNISOLONE [Suspect]
     Indication: HODGKIN'S DISEASE
     Route: 048
  24. PREDNISOLONE [Suspect]
     Route: 048
  25. PREDNISOLONE [Suspect]
     Route: 048
  26. DOXORUBICIN HCL [Suspect]
     Route: 042
  27. DOXORUBICIN HCL [Suspect]
     Route: 042
  28. BLEOMYCIN SULFATE [Suspect]
     Route: 042
  29. VINCRISTINE [Suspect]
     Route: 042
  30. VINBLASTINE SULFATE [Suspect]
     Route: 042
  31. CHLORAMBUCIL [Suspect]
     Route: 048
  32. PROCARBAZINE HYDROCHLORIDE [Suspect]
     Route: 048

REACTIONS (1)
  - SEPSIS [None]
